FAERS Safety Report 9883771 (Version 2)
Quarter: 2014Q3

REPORT INFORMATION
  Report Type: Spontaneous
  Country: US (occurrence: US)
  Receive Date: 20140210
  Receipt Date: 20140831
  Transmission Date: 20150326
  Serious: Yes (Other)
  Sender: FDA-Public Use
  Company Number: US-009507513-1402USA003505

PATIENT
  Sex: Female
  Weight: 87.66 kg

DRUGS (1)
  1. NUVARING [Suspect]
     Active Substance: ETHINYL ESTRADIOL\ETONOGESTREL
     Indication: CONTRACEPTION
     Dosage: UNK
     Route: 067
     Dates: start: 2002

REACTIONS (15)
  - Arthralgia [Unknown]
  - Maternal exposure before pregnancy [Unknown]
  - Epistaxis [Unknown]
  - Pulmonary embolism [Unknown]
  - Anxiety [Unknown]
  - Deep vein thrombosis [Unknown]
  - Depression [Unknown]
  - High risk sexual behaviour [Unknown]
  - Gastrooesophageal reflux disease [Unknown]
  - Fatigue [Unknown]
  - Exposure to toxic agent [Unknown]
  - Sinusitis [Unknown]
  - Pain in extremity [Unknown]
  - Obesity [Unknown]
  - Conjunctivitis [Unknown]

NARRATIVE: CASE EVENT DATE: 20101230
